FAERS Safety Report 7456484-8 (Version None)
Quarter: 2011Q2

REPORT INFORMATION
  Report Type: 
  Country: None (occurrence: None)
  Receive Date: 20110503
  Receipt Date: 20110502
  Transmission Date: 20111010
  Serious: Yes (Death)
  Sender: FDA-Public Use
  Company Number: CA-ABBOTT-11P-028-0717556-00

PATIENT
  Sex: Male
  Weight: 83.082 kg

DRUGS (1)
  1. LUPRON DEPOT [Suspect]
     Indication: PROSTATE CANCER
     Dates: start: 20101216, end: 20101216

REACTIONS (2)
  - AORTIC ANEURYSM [None]
  - MYOCARDIAL INFARCTION [None]
